FAERS Safety Report 5140630-5 (Version None)
Quarter: 2006Q4

REPORT INFORMATION
  Report Type: 
  Country: None (occurrence: None)
  Receive Date: 20061025
  Receipt Date: 20061009
  Transmission Date: 20070319
  Serious: Yes (Hospitalization)
  Sender: FDA-Public Use
  Company Number: DSA_28844_2006

PATIENT
  Age: 52 Year
  Sex: Male

DRUGS (15)
  1. LORAZEPAM [Suspect]
     Dosage: 3 MG Q DAY
     Dates: start: 20060904, end: 20060909
  2. LORAZEPAM [Suspect]
     Dosage: 5 MG Q DAY
     Dates: start: 20060921, end: 20060923
  3. TRITACE [Concomitant]
  4. SIMVASTATIN [Concomitant]
  5. METFORMIN [Concomitant]
  6. LORAZEPAM [Suspect]
     Dosage: 6.75 MG Q DAY
     Dates: start: 20060925, end: 20060926
  7. LORAZEPAM [Suspect]
     Dosage: 5 MG Q DAY
     Dates: start: 20060928
  8. DOMINAL [Suspect]
     Dosage: 40 MG Q DAY
     Dates: start: 20061003, end: 20061003
  9. DOMINAL [Suspect]
     Dosage: 160 MG Q DAY
     Dates: start: 20061004
  10. IXEL [Suspect]
     Dosage: VAR Q DAY
     Dates: start: 20060904, end: 20060924
  11. IXEL [Suspect]
     Dosage: 200 MG Q DAY
     Dates: start: 20060925
  12. MIRTABENE [Suspect]
     Dosage: VAR Q DAY
     Dates: start: 20060904, end: 20060906
  13. MIRTABENE [Suspect]
     Dosage: 60 MG Q DAY
     Dates: start: 20060907, end: 20060912
  14. INSULATARD NPH HUMAN [Concomitant]
  15. AMARYL [Concomitant]

REACTIONS (3)
  - CONDITION AGGRAVATED [None]
  - DIABETES MELLITUS [None]
  - HYPONATRAEMIA [None]
